FAERS Safety Report 9157451 (Version 1)
Quarter: 2013Q1

REPORT INFORMATION
  Report Type: Spontaneous
  Country: GB (occurrence: None)
  Receive Date: 20130213
  Receipt Date: 20130213
  Transmission Date: 20140127
  Serious: Yes (Other)
  Sender: FDA-Public Use
  Company Number: GER/UKI/13/0027895

PATIENT
  Age: 40 Year
  Sex: Male
  Weight: 73.02 kg

DRUGS (3)
  1. CIPROFLOXACIN (CIPROFLOXACIN) [Suspect]
     Indication: INFECTION PROPHYLAXIS
     Route: 048
     Dates: start: 20130110, end: 20130115
  2. IBUPROFEN (IBUPROFEN) [Concomitant]
  3. PARACETAMOL (PARACETAMOL) [Concomitant]

REACTIONS (10)
  - Headache [None]
  - Dizziness [None]
  - Tinnitus [None]
  - Pain in jaw [None]
  - Arthralgia [None]
  - Joint crepitation [None]
  - Joint stiffness [None]
  - Tendon pain [None]
  - Malaise [None]
  - Arthralgia [None]
